FAERS Safety Report 24424080 (Version 2)
Quarter: 2024Q4

REPORT INFORMATION
  Report Type: Spontaneous
  Country: CO (occurrence: CO)
  Receive Date: 20241010
  Receipt Date: 20241028
  Transmission Date: 20250114
  Serious: Yes (Hospitalization, Other)
  Sender: SANOFI AVENTIS
  Company Number: CO-SA-2024SA288716

PATIENT
  Age: 43 Year
  Sex: Female
  Weight: 107 kg

DRUGS (9)
  1. LANTUS [Suspect]
     Active Substance: INSULIN GLARGINE
     Indication: Type 2 diabetes mellitus
     Dosage: 20 IU, QD
     Route: 058
     Dates: start: 201912, end: 202003
  2. METFORMIN HYDROCHLORIDE [Suspect]
     Active Substance: METFORMIN HYDROCHLORIDE
     Indication: Type 2 diabetes mellitus
     Dosage: 850 MG
     Route: 048
     Dates: start: 2020
  3. METFORMIN HYDROCHLORIDE [Suspect]
     Active Substance: METFORMIN HYDROCHLORIDE
     Dosage: 1000 MG, BID; (LUNCH AND DINNER)
     Route: 048
     Dates: start: 202402
  4. LEVOTHYROXINE [Suspect]
     Active Substance: LEVOTHYROXINE
     Indication: Discomfort
     Dosage: 150 MG, QD
     Route: 048
  5. ROSUVASTATINE/EZETIMIBE [Concomitant]
     Dosage: 1 DF, QD; 1 DOSE EVERY 1 DAY[ 10MG/40MG]
     Route: 048
  6. SATOREN H [Concomitant]
     Indication: Hypertension
     Dosage: 1 DF, Q12D; 1 DOSE EVERY 12 HOUR[ 12.5MG/50MG]
     Route: 048
     Dates: start: 2012
  7. Respimax [Concomitant]
     Indication: Asthma
     Dosage: 2 CCID_50 1 DOSE EVERY 1 DAY; 2 PUFFS DAILY
  8. ROSUVASTATIN [Concomitant]
     Active Substance: ROSUVASTATIN
     Indication: Blood triglycerides abnormal
     Dosage: 40 MG 1 DOSE EVERY 1 DAY
     Route: 048
  9. ROSUVASTATIN [Concomitant]
     Active Substance: ROSUVASTATIN
     Indication: Blood cholesterol abnormal

REACTIONS (17)
  - Hyperthyroidism [Not Recovered/Not Resolved]
  - Tremor [Not Recovered/Not Resolved]
  - Alopecia [Not Recovered/Not Resolved]
  - Diarrhoea [Not Recovered/Not Resolved]
  - Vomiting [Not Recovered/Not Resolved]
  - Thyroiditis [Not Recovered/Not Resolved]
  - Chronic obstructive pulmonary disease [Not Recovered/Not Resolved]
  - Sleep apnoea syndrome [Not Recovered/Not Resolved]
  - Thyroid function test abnormal [Unknown]
  - Discomfort [Unknown]
  - Hunger [Not Recovered/Not Resolved]
  - Fatigue [Not Recovered/Not Resolved]
  - Dysphonia [Unknown]
  - Depression [Not Recovered/Not Resolved]
  - Anxiety [Not Recovered/Not Resolved]
  - Crying [Not Recovered/Not Resolved]
  - Drug resistance [Unknown]

NARRATIVE: CASE EVENT DATE: 20200101
